FAERS Safety Report 18053780 (Version 1)
Quarter: 2020Q3

REPORT INFORMATION
  Report Type: Report from Study
  Country: JP (occurrence: JP)
  Receive Date: 20200722
  Receipt Date: 20200722
  Transmission Date: 20201103
  Serious: Yes (Hospitalization)
  Sender: FDA-Public Use
  Company Number: JP-SUN PHARMACEUTICAL INDUSTRIES LTD-2020R1-233619

PATIENT
  Age: 55 Year
  Sex: Male
  Weight: 123.5 kg

DRUGS (3)
  1. MK?3222 INJECTION [Suspect]
     Active Substance: TILDRAKIZUMAB
     Indication: PSORIASIS
     Dosage: UNK
     Route: 058
     Dates: start: 20160801
  2. TALION [Concomitant]
     Indication: PSORIASIS
     Dosage: UNK
     Route: 065
     Dates: start: 20120512
  3. PETROLATUM. [Concomitant]
     Active Substance: PETROLATUM
     Indication: PSORIASIS
     Dosage: UNK
     Route: 065
     Dates: start: 20160409

REACTIONS (1)
  - Cellulitis [Recovered/Resolved]

NARRATIVE: CASE EVENT DATE: 20200113
